FAERS Safety Report 15471625 (Version 5)
Quarter: 2020Q1

REPORT INFORMATION
  Report Type: Report from Study
  Country: BR (occurrence: BR)
  Receive Date: 20181007
  Receipt Date: 20200315
  Transmission Date: 20200409
  Serious: Yes (Other)
  Sender: FDA-Public Use
  Company Number: BR-BRISTOL-MYERS SQUIBB COMPANY-BMS-2017-067569

PATIENT
  Age: 55 Year
  Sex: Female

DRUGS (4)
  1. ABATACEPT [Suspect]
     Active Substance: ABATACEPT
     Indication: PRODUCT USED FOR UNKNOWN INDICATION
     Dosage: 750 MILLIGRAM, QMO
     Route: 042
     Dates: start: 20200220
  2. METHOTREXATE. [Concomitant]
     Active Substance: METHOTREXATE
     Indication: PRODUCT USED FOR UNKNOWN INDICATION
     Dosage: UNK
     Route: 065
  3. PRELONE [Concomitant]
     Active Substance: PREDNISOLONE
     Indication: PRODUCT USED FOR UNKNOWN INDICATION
     Route: 065
  4. ABATACEPT [Suspect]
     Active Substance: ABATACEPT
     Indication: RHEUMATOID ARTHRITIS
     Dosage: 750 MG (DOSE OF 3 VIALS OF 250 MG), QMO
     Route: 042
     Dates: start: 201609, end: 20191219

REACTIONS (12)
  - Labyrinthitis [Recovered/Resolved]
  - Nasopharyngitis [Recovered/Resolved]
  - Gastric disorder [Unknown]
  - Oropharyngeal pain [Recovering/Resolving]
  - Stress [Recovered/Resolved]
  - Cough [Recovering/Resolving]
  - Sinusitis [Recovered/Resolved]
  - Oesophagitis [Recovered/Resolved]
  - Pharyngitis [Recovered/Resolved]
  - Immunodeficiency [Recovered/Resolved]
  - Retching [Unknown]
  - Influenza [Recovering/Resolving]

NARRATIVE: CASE EVENT DATE: 20170703
